FAERS Safety Report 6210180-3 (Version None)
Quarter: 2009Q2

REPORT INFORMATION
  Report Type: 
  Country: None (occurrence: None)
  Receive Date: 20090601
  Receipt Date: 20090521
  Transmission Date: 20091009
  Serious: Yes (Hospitalization, Disabling)
  Sender: FDA-Public Use
  Company Number: US-JNJFOC-20090400665

PATIENT
  Sex: Female

DRUGS (3)
  1. REMICADE [Suspect]
  2. REMICADE [Suspect]
     Indication: RHEUMATOID ARTHRITIS
  3. METHOTREXATE SODIUM [Concomitant]

REACTIONS (10)
  - CARDIOMEGALY [None]
  - CARDIOMYOPATHY [None]
  - CLOSTRIDIAL INFECTION [None]
  - DEPRESSION [None]
  - DIVERTICULITIS [None]
  - GAIT DISTURBANCE [None]
  - IMPAIRED WORK ABILITY [None]
  - MYOCARDIAL INFARCTION [None]
  - PAIN [None]
  - PNEUMONIA [None]
